FAERS Safety Report 8561945-4 (Version None)
Quarter: 2012Q3

REPORT INFORMATION
  Report Type: 
  Country: None (occurrence: None)
  Receive Date: 20120802
  Receipt Date: 20120723
  Transmission Date: 20120928
  Serious: Yes (Other)
  Sender: FDA-Public Use
  Company Number: US-BAXTER-2012BAX013146

PATIENT
  Age: 57 Year
  Sex: Male

DRUGS (8)
  1. NEXTERONE [Suspect]
     Route: 042
  2. NEXTERONE [Suspect]
     Route: 042
  3. METOPROLOL TARTRATE [Concomitant]
  4. NEXTERONE [Suspect]
     Route: 042
  5. NOREPINEPHRINE [Concomitant]
     Indication: HYPOTENSION
     Dosage: UP TO 10 UG/MIN
  6. PHENYLEPHRINE HCL [Concomitant]
     Indication: HYPOTENSION
     Dosage: UP TO 100 UG/MIN
  7. VASOPRESSIN [Concomitant]
  8. FUROSEMIDE [Concomitant]

REACTIONS (1)
  - TOXICITY TO VARIOUS AGENTS [None]
